FAERS Safety Report 7216586-8 (Version None)
Quarter: 2011Q1

REPORT INFORMATION
  Report Type: 
  Country: None (occurrence: None)
  Receive Date: 20110110
  Receipt Date: 20110103
  Transmission Date: 20110831
  Serious: Yes (Hospitalization)
  Sender: FDA-Public Use
  Company Number: US-BIOGENIDEC-2010BI040028

PATIENT
  Age: 54 Year
  Sex: Female

DRUGS (8)
  1. EFFEXOR [Concomitant]
  2. ADVIL [Concomitant]
  3. LIPITOR [Concomitant]
  4. AVONEX [Suspect]
     Route: 030
     Dates: start: 20101118
  5. AVONEX [Suspect]
     Route: 030
     Dates: start: 20060623, end: 20080215
  6. AVONEX [Suspect]
     Indication: MULTIPLE SCLEROSIS
     Route: 030
     Dates: start: 20101025, end: 20101118
  7. LISINOPRIL [Concomitant]
  8. ZOMIG [Concomitant]

REACTIONS (3)
  - PAIN [None]
  - DEPRESSION [None]
  - SPINAL DISORDER [None]
